FAERS Safety Report 5016057-3 (Version None)
Quarter: 2006Q2

REPORT INFORMATION
  Report Type: 
  Country: None (occurrence: None)
  Receive Date: 20060601
  Receipt Date: 20060524
  Transmission Date: 20061013
  Serious: Yes (Hospitalization)
  Sender: FDA-Public Use
  Company Number: SE-BOEHRINGER INGELHEIM PHARMACEUTICALS, INC.-2006-SW-00233SW

PATIENT
  Age: 86 Year
  Sex: Male

DRUGS (2)
  1. SPIRIVA [Suspect]
     Indication: CHRONIC OBSTRUCTIVE PULMONARY DISEASE
     Route: 055
     Dates: start: 20030101
  2. COMBIVENT [Suspect]
     Indication: CHRONIC OBSTRUCTIVE PULMONARY DISEASE
     Dosage: STRENGTH; 0,5 MG IPRATROPIUM + 2,5 MG SALBUTAMOL, DAILY DOSE; 2 MG IPRATROPIUM + 10 MG SALBUTAMOL.
     Route: 055
     Dates: start: 20060516

REACTIONS (5)
  - CHEST X-RAY ABNORMAL [None]
  - DYSPNOEA [None]
  - DYSURIA [None]
  - NASOPHARYNGITIS [None]
  - URINARY RETENTION [None]
